FAERS Safety Report 7754377-X (Version None)
Quarter: 2011Q3

REPORT INFORMATION
  Report Type: 
  Country: None (occurrence: None)
  Receive Date: 20110915
  Receipt Date: 20110901
  Transmission Date: 20111222
  Serious: Yes (Hospitalization, Other)
  Sender: FDA-Public Use
  Company Number: US-ELI_LILLY_AND_COMPANY-US201108000439

PATIENT
  Age: 42 Year
  Sex: Male

DRUGS (6)
  1. FLUCONAZOLE [Concomitant]
  2. PROPOFOL [Concomitant]
  3. NOREPINEPHRINE BITARTRATE [Concomitant]
  4. CEFOXITIN [Concomitant]
  5. XIGRIS [Suspect]
     Indication: SEPSIS
     Dosage: 24 MG/KG, EVERY HOUR
     Route: 042
     Dates: start: 20110722, end: 20110724
  6. HEPARIN [Concomitant]
     Route: 058

REACTIONS (1)
  - MYOCARDIAL INFARCTION [None]
